FAERS Safety Report 4827384-4 (Version None)
Quarter: 2005Q4

REPORT INFORMATION
  Report Type: 
  Country: None (occurrence: None)
  Receive Date: 20051110
  Receipt Date: 20051107
  Transmission Date: 20060501
  Serious: Yes (Life-Threatening, Hospitalization)
  Sender: FDA-Public Use
  Company Number: 05CAN0223

PATIENT
  Age: 73 Year
  Sex: Male

DRUGS (4)
  1. AGGRASTAT [Suspect]
     Indication: ACUTE CORONARY SYNDROME
     Dosage: INITIAL IV BOLUS 32 ML/HR
     Route: 040
     Dates: start: 20050920, end: 20050920
  2. HEPARIN [Suspect]
     Indication: ACUTE CORONARY SYNDROME
     Dosage: IV BOLUS OF 5000 IU X1 INFUSION FORM 25,000  IU (16 ML/QH)
     Route: 040
     Dates: start: 20050919, end: 20050919
  3. PLAVIX [Suspect]
     Dosage: 75 MG
  4. ASA (ACETYLSALICYLIC ACID) (80 MILLIGRAM) [Suspect]
     Dosage: 80 MG

REACTIONS (6)
  - ABDOMINAL PAIN [None]
  - HAEMOGLOBIN DECREASED [None]
  - POST PROCEDURAL COMPLICATION [None]
  - RETROPERITONEAL HAEMORRHAGE [None]
  - SHOCK [None]
  - VASCULAR INJURY [None]
